FAERS Safety Report 8452198-6 (Version None)
Quarter: 2012Q2

REPORT INFORMATION
  Report Type: 
  Country: None (occurrence: None)
  Receive Date: 20120620
  Receipt Date: 20120606
  Transmission Date: 20120825
  Serious: Yes (Other)
  Sender: FDA-Public Use
  Company Number: US-ROCHE-792166

PATIENT
  Sex: Male
  Weight: 86.26 kg

DRUGS (2)
  1. ACCUTANE [Suspect]
     Route: 065
     Dates: start: 19970101, end: 19980101
  2. ACCUTANE [Suspect]
     Indication: ACNE
     Dosage: DOSE: 40 MG DAILY IN AM AND 20 MG DAILY IN PM.
     Route: 048
     Dates: start: 19970901, end: 19971101

REACTIONS (9)
  - DRY SKIN [None]
  - ABSCESS [None]
  - COLITIS ULCERATIVE [None]
  - INFLAMMATORY BOWEL DISEASE [None]
  - INTESTINAL OBSTRUCTION [None]
  - CROHN'S DISEASE [None]
  - EMOTIONAL DISTRESS [None]
  - ANAL FISSURE [None]
  - COLONIC FISTULA [None]
